FAERS Safety Report 6736397-7 (Version None)
Quarter: 2010Q2

REPORT INFORMATION
  Report Type: 
  Country: None (occurrence: None)
  Receive Date: 20100521
  Receipt Date: 20100520
  Transmission Date: 20101027
  Serious: Yes (Hospitalization, Disabling)
  Sender: FDA-Public Use
  Company Number: US-MERCK-1001USA00054

PATIENT
  Age: 79 Year
  Sex: Female
  Weight: 65 kg

DRUGS (8)
  1. FOSAMAX [Suspect]
     Indication: OSTEOPOROSIS
     Route: 048
     Dates: start: 19980101, end: 20070101
  2. FOSAMAX [Suspect]
     Route: 048
     Dates: start: 19980101, end: 20040101
  3. FOSAMAX [Suspect]
     Route: 048
     Dates: start: 20040101, end: 20080501
  4. FOSAMAX [Suspect]
     Indication: OSTEOPENIA
     Route: 048
     Dates: start: 19980101, end: 20070101
  5. FOSAMAX [Suspect]
     Route: 048
     Dates: start: 19980101, end: 20040101
  6. FOSAMAX [Suspect]
     Route: 048
     Dates: start: 20040101, end: 20080501
  7. ATENOLOL [Concomitant]
     Route: 065
     Dates: start: 19960101
  8. COSOPT [Concomitant]
     Route: 065
     Dates: start: 19960101

REACTIONS (31)
  - ANXIETY [None]
  - ARTERIOSCLEROSIS CORONARY ARTERY [None]
  - ARTHRALGIA [None]
  - BACK PAIN [None]
  - CATARACT [None]
  - CORONARY ARTERY DISEASE [None]
  - COUGH [None]
  - DEPRESSION [None]
  - DISTURBANCE IN ATTENTION [None]
  - DIVERTICULUM INTESTINAL [None]
  - DIZZINESS [None]
  - DYSLIPIDAEMIA [None]
  - EXPOSURE TO CONTAMINATED AIR [None]
  - FALL [None]
  - FEELINGS OF WORTHLESSNESS [None]
  - FEMUR FRACTURE [None]
  - GASTRITIS [None]
  - HAEMORRHOIDS [None]
  - HELICOBACTER INFECTION [None]
  - INSOMNIA [None]
  - KYPHOSIS [None]
  - LOW TURNOVER OSTEOPATHY [None]
  - LUNG DISORDER [None]
  - NORMOCHROMIC NORMOCYTIC ANAEMIA [None]
  - OBESITY [None]
  - PAIN [None]
  - PAIN IN EXTREMITY [None]
  - PALPITATIONS [None]
  - RECTAL HAEMORRHAGE [None]
  - RENAL CYST [None]
  - UMBILICAL HERNIA [None]
